FAERS Safety Report 5151986-1 (Version None)
Quarter: 2006Q4

REPORT INFORMATION
  Report Type: 
  Country: None (occurrence: None)
  Receive Date: 20061109
  Receipt Date: 20061101
  Transmission Date: 20070319
  Serious: Yes (Death)
  Sender: FDA-Public Use
  Company Number: 112218ISR

PATIENT
  Age: 29 Year
  Sex: Male

DRUGS (3)
  1. LAMOTRIGINE [Suspect]
     Indication: EPILEPSY
     Dosage: 1 DF 3 TIMES A DAY. ORAL
     Route: 048
     Dates: start: 20000801
  2. VALPROATE SODIUM [Concomitant]
  3. GABAPENTIN [Concomitant]

REACTIONS (1)
  - SUDDEN DEATH [None]
